FAERS Safety Report 24413695 (Version 1)
Quarter: 2024Q4

REPORT INFORMATION
  Report Type: Spontaneous
  Country: CA (occurrence: CA)
  Receive Date: 20241008
  Receipt Date: 20241008
  Transmission Date: 20250114
  Serious: Yes (Hospitalization, Other)
  Sender: SANDOZ
  Company Number: CA-SANDOZ-SDZ2024CA085230

PATIENT
  Age: 61 Year
  Sex: Female

DRUGS (1)
  1. PIRFENIDONE [Suspect]
     Active Substance: PIRFENIDONE
     Indication: Idiopathic pulmonary fibrosis
     Dosage: 267 MG, TID
     Route: 048

REACTIONS (5)
  - Acute myocardial infarction [Unknown]
  - Pulmonary embolism [Unknown]
  - Dyspnoea [Unknown]
  - Pneumonia [Unknown]
  - Chest pain [Unknown]
